FAERS Safety Report 26150072 (Version 1)
Quarter: 2025Q4

REPORT INFORMATION
  Report Type: Spontaneous
  Country: JP (occurrence: JP)
  Receive Date: 20251212
  Receipt Date: 20251212
  Transmission Date: 20260118
  Serious: Yes (Hospitalization)
  Sender: MYLAN
  Company Number: JP-VIATRISJAPAN-2025M1104593AA

PATIENT
  Age: 92 Year
  Sex: Female

DRUGS (56)
  1. NORVASC [Suspect]
     Active Substance: AMLODIPINE BESYLATE
     Indication: Product used for unknown indication
     Dosage: 5 MILLIGRAM, QD
  2. NORVASC [Suspect]
     Active Substance: AMLODIPINE BESYLATE
     Dosage: 5 MILLIGRAM, QD
  3. NORVASC [Suspect]
     Active Substance: AMLODIPINE BESYLATE
     Dosage: 5 MILLIGRAM, QD
     Route: 048
  4. NORVASC [Suspect]
     Active Substance: AMLODIPINE BESYLATE
     Dosage: 5 MILLIGRAM, QD
     Route: 048
  5. NORVASC [Suspect]
     Active Substance: AMLODIPINE BESYLATE
     Dosage: 2.5 MILLIGRAM, QD
  6. NORVASC [Suspect]
     Active Substance: AMLODIPINE BESYLATE
     Dosage: 2.5 MILLIGRAM, QD
  7. NORVASC [Suspect]
     Active Substance: AMLODIPINE BESYLATE
     Dosage: 2.5 MILLIGRAM, QD
     Route: 048
  8. NORVASC [Suspect]
     Active Substance: AMLODIPINE BESYLATE
     Dosage: 2.5 MILLIGRAM, QD
     Route: 048
  9. IBANDRONATE SODIUM [Suspect]
     Active Substance: IBANDRONATE SODIUM
     Indication: Product used for unknown indication
     Dosage: 100 MILLIGRAM, MONTHLY
  10. IBANDRONATE SODIUM [Suspect]
     Active Substance: IBANDRONATE SODIUM
     Dosage: 100 MILLIGRAM, MONTHLY
     Route: 048
  11. IBANDRONATE SODIUM [Suspect]
     Active Substance: IBANDRONATE SODIUM
     Dosage: 100 MILLIGRAM, MONTHLY
     Route: 048
  12. IBANDRONATE SODIUM [Suspect]
     Active Substance: IBANDRONATE SODIUM
     Dosage: 100 MILLIGRAM, MONTHLY
  13. VALSARTAN [Suspect]
     Active Substance: VALSARTAN
     Indication: Product used for unknown indication
     Dosage: 40 MILLIGRAM, QD
  14. VALSARTAN [Suspect]
     Active Substance: VALSARTAN
     Dosage: 40 MILLIGRAM, QD
     Route: 048
  15. VALSARTAN [Suspect]
     Active Substance: VALSARTAN
     Dosage: 40 MILLIGRAM, QD
     Route: 048
  16. VALSARTAN [Suspect]
     Active Substance: VALSARTAN
     Dosage: 40 MILLIGRAM, QD
  17. DULOXETINE [Suspect]
     Active Substance: DULOXETINE
     Indication: Product used for unknown indication
     Dosage: 20 MILLIGRAM, QD
  18. DULOXETINE [Suspect]
     Active Substance: DULOXETINE
     Dosage: 20 MILLIGRAM, QD
     Route: 048
  19. DULOXETINE [Suspect]
     Active Substance: DULOXETINE
     Dosage: 20 MILLIGRAM, QD
     Route: 048
  20. DULOXETINE [Suspect]
     Active Substance: DULOXETINE
     Dosage: 20 MILLIGRAM, QD
  21. SENNOSIDES [Concomitant]
     Active Substance: SENNOSIDES
     Indication: Product used for unknown indication
     Dosage: 12 MILLIGRAM, QD
  22. SENNOSIDES [Concomitant]
     Active Substance: SENNOSIDES
     Dosage: 12 MILLIGRAM, QD
     Route: 048
  23. SENNOSIDES [Concomitant]
     Active Substance: SENNOSIDES
     Dosage: 12 MILLIGRAM, QD
     Route: 048
  24. SENNOSIDES [Concomitant]
     Active Substance: SENNOSIDES
     Dosage: 12 MILLIGRAM, QD
  25. CARBOCYSTEINE [Concomitant]
     Active Substance: CARBOCYSTEINE
     Indication: Product used for unknown indication
     Dosage: 500 MILLIGRAM, TID
  26. CARBOCYSTEINE [Concomitant]
     Active Substance: CARBOCYSTEINE
     Dosage: 500 MILLIGRAM, TID
     Route: 048
  27. CARBOCYSTEINE [Concomitant]
     Active Substance: CARBOCYSTEINE
     Dosage: 500 MILLIGRAM, TID
     Route: 048
  28. CARBOCYSTEINE [Concomitant]
     Active Substance: CARBOCYSTEINE
     Dosage: 500 MILLIGRAM, TID
  29. LEMBOREXANT [Concomitant]
     Active Substance: LEMBOREXANT
     Indication: Product used for unknown indication
     Dosage: 5 MILLIGRAM, QD
  30. LEMBOREXANT [Concomitant]
     Active Substance: LEMBOREXANT
     Dosage: 5 MILLIGRAM, QD
     Route: 048
  31. LEMBOREXANT [Concomitant]
     Active Substance: LEMBOREXANT
     Dosage: 5 MILLIGRAM, QD
     Route: 048
  32. LEMBOREXANT [Concomitant]
     Active Substance: LEMBOREXANT
     Dosage: 5 MILLIGRAM, QD
  33. ACETAMINOPHEN [Concomitant]
     Active Substance: ACETAMINOPHEN
     Indication: Product used for unknown indication
     Dosage: 400 MILLIGRAM, BID
  34. ACETAMINOPHEN [Concomitant]
     Active Substance: ACETAMINOPHEN
     Dosage: 400 MILLIGRAM, BID
     Route: 048
  35. ACETAMINOPHEN [Concomitant]
     Active Substance: ACETAMINOPHEN
     Dosage: 400 MILLIGRAM, BID
     Route: 048
  36. ACETAMINOPHEN [Concomitant]
     Active Substance: ACETAMINOPHEN
     Dosage: 400 MILLIGRAM, BID
  37. TULOBUTEROL [Concomitant]
     Active Substance: TULOBUTEROL
     Indication: Product used for unknown indication
     Dosage: 2 MILLIGRAM, QD
  38. TULOBUTEROL [Concomitant]
     Active Substance: TULOBUTEROL
     Dosage: 2 MILLIGRAM, QD
     Route: 062
  39. TULOBUTEROL [Concomitant]
     Active Substance: TULOBUTEROL
     Dosage: 2 MILLIGRAM, QD
     Route: 062
  40. TULOBUTEROL [Concomitant]
     Active Substance: TULOBUTEROL
     Dosage: 2 MILLIGRAM, QD
  41. TAFLUPROST [Concomitant]
     Active Substance: TAFLUPROST
     Indication: Product used for unknown indication
     Dosage: UNK, QD
  42. TAFLUPROST [Concomitant]
     Active Substance: TAFLUPROST
     Dosage: UNK, QD
     Route: 047
  43. TAFLUPROST [Concomitant]
     Active Substance: TAFLUPROST
     Dosage: UNK, QD
     Route: 047
  44. TAFLUPROST [Concomitant]
     Active Substance: TAFLUPROST
     Dosage: UNK, QD
  45. Mytear [Concomitant]
     Indication: Product used for unknown indication
     Dosage: UNK, QID
  46. Mytear [Concomitant]
     Dosage: UNK, QID
     Route: 047
  47. Mytear [Concomitant]
     Dosage: UNK, QID
     Route: 047
  48. Mytear [Concomitant]
     Dosage: UNK, QID
  49. BRIMONIDINE [Concomitant]
     Active Substance: BRIMONIDINE TARTRATE
     Indication: Product used for unknown indication
     Dosage: UNK, BID
  50. BRIMONIDINE [Concomitant]
     Active Substance: BRIMONIDINE TARTRATE
     Dosage: UNK, BID
     Route: 047
  51. BRIMONIDINE [Concomitant]
     Active Substance: BRIMONIDINE TARTRATE
     Dosage: UNK, BID
     Route: 047
  52. BRIMONIDINE [Concomitant]
     Active Substance: BRIMONIDINE TARTRATE
     Dosage: UNK, BID
  53. OFLOXACIN [Concomitant]
     Active Substance: OFLOXACIN
     Indication: Product used for unknown indication
     Dosage: UNK, QD
  54. OFLOXACIN [Concomitant]
     Active Substance: OFLOXACIN
     Dosage: UNK, QD
     Route: 047
  55. OFLOXACIN [Concomitant]
     Active Substance: OFLOXACIN
     Dosage: UNK, QD
     Route: 047
  56. OFLOXACIN [Concomitant]
     Active Substance: OFLOXACIN
     Dosage: UNK, QD

REACTIONS (2)
  - Oral herpes [Recovering/Resolving]
  - Wrong technique in product usage process [Unknown]
